FAERS Safety Report 24035141 (Version 2)
Quarter: 2025Q1

REPORT INFORMATION
  Report Type: Spontaneous
  Country: JP (occurrence: JP)
  Receive Date: 20240701
  Receipt Date: 20250120
  Transmission Date: 20250408
  Serious: Yes (Death, Other)
  Sender: MERCK
  Company Number: JP-MSD-2406JPN003981J

PATIENT
  Age: 66 Year
  Sex: Female

DRUGS (3)
  1. KEYTRUDA [Suspect]
     Active Substance: PEMBROLIZUMAB
     Indication: Squamous cell carcinoma of the cervix
     Route: 065
  2. PACLITAXEL [Suspect]
     Active Substance: PACLITAXEL
     Indication: Squamous cell carcinoma of the cervix
     Route: 065
  3. CARBOPLATIN [Suspect]
     Active Substance: CARBOPLATIN
     Indication: Squamous cell carcinoma of the cervix
     Route: 065

REACTIONS (1)
  - Malignant neoplasm progression [Fatal]
